FAERS Safety Report 11866505 (Version 1)
Quarter: 2015Q4

REPORT INFORMATION
  Report Type: Spontaneous
  Country: GB (occurrence: GB)
  Receive Date: 20151224
  Receipt Date: 20151224
  Transmission Date: 20160305
  Serious: Yes (Other)
  Sender: FDA-Public Use
  Company Number: GB-ALKEM-001383

PATIENT
  Age: 52 Year
  Sex: Female

DRUGS (5)
  1. THIAMINE. [Concomitant]
     Active Substance: THIAMINE
  2. ACAMPROSATE/ACAMPROSATE CALCIUM [Concomitant]
  3. QUETIAPINE/QUETIAPINE FUMARATE [Suspect]
     Active Substance: QUETIAPINE FUMARATE
     Indication: BIPOLAR DISORDER
     Dosage: DOSE INCREASED IN JULY 2015
     Route: 048
     Dates: start: 2013, end: 20151101
  4. PREGABALIN. [Concomitant]
     Active Substance: PREGABALIN
  5. VITAMIN B COMPLEX STRONG [Concomitant]

REACTIONS (7)
  - Inflammatory marker increased [Unknown]
  - Lupus-like syndrome [Recovering/Resolving]
  - Headache [Unknown]
  - Amnesia [Unknown]
  - Confusional state [Unknown]
  - Impaired self-care [Unknown]
  - Contusion [None]

NARRATIVE: CASE EVENT DATE: 20151025
